FAERS Safety Report 5583059-8 (Version None)
Quarter: 2008Q1

REPORT INFORMATION
  Report Type: 
  Country: None (occurrence: None)
  Receive Date: 20080107
  Receipt Date: 20080107
  Transmission Date: 20080703
  Serious: Yes (Hospitalization)
  Sender: FDA-Public Use
  Company Number: B0498901A

PATIENT
  Age: 81 Year
  Sex: Female
  Weight: 45 kg

DRUGS (6)
  1. VALTREX [Suspect]
     Indication: HERPES ZOSTER
     Dosage: 1000MG THREE TIMES PER DAY
     Route: 048
     Dates: start: 20071127, end: 20071202
  2. CONIEL [Concomitant]
     Indication: ANGINA PECTORIS
     Dosage: 4MG TWICE PER DAY
     Route: 048
     Dates: start: 20041119
  3. ARASENA-A [Concomitant]
     Indication: HERPES ZOSTER
     Route: 061
     Dates: start: 20071127, end: 20071203
  4. LOXONIN [Concomitant]
     Indication: HERPES ZOSTER
     Dosage: 120MG PER DAY
     Route: 048
     Dates: start: 20071130, end: 20071202
  5. METHYLCOBAL [Concomitant]
     Indication: HERPES ZOSTER
     Route: 048
     Dates: start: 20071130, end: 20071202
  6. MUCOSTA [Concomitant]
     Indication: GASTRITIS
     Dosage: 300MG PER DAY
     Route: 048
     Dates: start: 20071130, end: 20071202

REACTIONS (9)
  - ANOREXIA [None]
  - BLOOD CREATININE INCREASED [None]
  - GASTROENTERITIS [None]
  - PRODUCTIVE COUGH [None]
  - PYREXIA [None]
  - RENAL DISORDER [None]
  - RENAL FUNCTION TEST ABNORMAL [None]
  - RHINORRHOEA [None]
  - VOMITING [None]
